FAERS Safety Report 5926468-7 (Version None)
Quarter: 2008Q4

REPORT INFORMATION
  Report Type: 
  Country: None (occurrence: None)
  Receive Date: 20081022
  Receipt Date: 20081013
  Transmission Date: 20090506
  Serious: Yes (Hospitalization, Other)
  Sender: FDA-Public Use
  Company Number: PHHY2008SK24769

PATIENT
  Sex: Male

DRUGS (2)
  1. EXELON [Suspect]
     Dosage: 4.5 MG, BID
     Route: 048
  2. EXELON [Suspect]
     Dosage: 2X4.5 MG
     Route: 062

REACTIONS (3)
  - ARRHYTHMIA [None]
  - DYSPNOEA [None]
  - PULMONARY OEDEMA [None]
